FAERS Safety Report 14101040 (Version 1)
Quarter: 2017Q4

REPORT INFORMATION
  Report Type: Spontaneous
  Country: US (occurrence: None)
  Receive Date: 20171017
  Receipt Date: 20171017
  Transmission Date: 20180321
  Serious: No
  Sender: FDA-Public Use
  Company Number: None

PATIENT
  Age: 17 Year
  Sex: Female

DRUGS (1)
  1. STELARA [Suspect]
     Active Substance: USTEKINUMAB
     Indication: CROHN^S DISEASE
     Dosage: 90MG/ML Q 8 WEEKS SQ
     Route: 058
     Dates: start: 20170815

REACTIONS (4)
  - Myalgia [None]
  - Feeling of body temperature change [None]
  - Arthralgia [None]
  - Hot flush [None]

NARRATIVE: CASE EVENT DATE: 20170901
